FAERS Safety Report 18056805 (Version 1)
Quarter: 2020Q3

REPORT INFORMATION
  Report Type: Spontaneous
  Country: US (occurrence: US)
  Receive Date: 20200722
  Receipt Date: 20200722
  Transmission Date: 20201103
  Serious: Yes (Hospitalization, Other)
  Sender: FDA-Public Use
  Company Number: US-PURDUE-USA-2020-0158873

PATIENT
  Sex: Female

DRUGS (2)
  1. OXYCONTIN [Suspect]
     Active Substance: OXYCODONE HYDROCHLORIDE
     Indication: HIP FRACTURE
     Dosage: UNKNOWN
     Route: 048
  2. OXYCODONE HCL TABLETS (RHODES 91?490) [Suspect]
     Active Substance: OXYCODONE HYDROCHLORIDE
     Indication: HIP FRACTURE
     Dosage: UNKNOWN
     Route: 048

REACTIONS (5)
  - Drug dependence [Unknown]
  - Illness [Not Recovered/Not Resolved]
  - Hospitalisation [Recovered/Resolved]
  - Drug detoxification [Unknown]
  - Overdose [Unknown]

NARRATIVE: CASE EVENT DATE: 2013
